FAERS Safety Report 19243908 (Version 4)
Quarter: 2022Q3

REPORT INFORMATION
  Report Type: Report from Study
  Country: DE (occurrence: DE)
  Receive Date: 20210511
  Receipt Date: 20220808
  Transmission Date: 20221026
  Serious: Yes (Hospitalization, Disabling, Other)
  Sender: FDA-Public Use
  Company Number: DE-ABBVIE-21K-062-3894348-00

PATIENT
  Age: 64 Year
  Sex: Female

DRUGS (10)
  1. HUMIRA [Suspect]
     Active Substance: ADALIMUMAB
     Indication: Rheumatoid arthritis
     Route: 058
     Dates: start: 201404, end: 201703
  2. HUMIRA [Suspect]
     Active Substance: ADALIMUMAB
     Route: 058
     Dates: start: 201907, end: 202011
  3. HYRIMOZ [Suspect]
     Active Substance: ADALIMUMAB-ADAZ
     Indication: Rheumatoid arthritis
     Route: 058
     Dates: start: 201812, end: 201907
  4. LEFLUNOMIDE [Concomitant]
     Active Substance: LEFLUNOMIDE
     Indication: Rheumatoid arthritis
     Dosage: START DATE BEFORE 25 APR 2013 AND BETWEEN 15 OCT 2013-16 APR 2014
  5. METHOTREXATE [Concomitant]
     Active Substance: METHOTREXATE
     Indication: Rheumatoid arthritis
     Dosage: START DATE BETWEEN 08 JUL 2013-15 OCT 2013 AND STOP DATE BETWEEN 16 APR 2014-28 OCT 2014
  6. METHOTREXATE [Concomitant]
     Active Substance: METHOTREXATE
     Dosage: START DATE BETWEEN 16 APR 2014-28 OCT 2014 AND STOP DATE BETWEEN 28 OCT 2014-21 APR 2015
  7. METHOTREXATE [Concomitant]
     Active Substance: METHOTREXATE
     Dosage: START DATE BETWEEN 28 OCT 2014-21 APR 2015AND STOP DATE BETWEEN 04 JUL 2019-17 MAR 2020
  8. METHOTREXATE [Concomitant]
     Active Substance: METHOTREXATE
     Dosage: START DATE BETWEEN 04 JUL 2019-17 MAR 2020
  9. ETANERCEPT [Concomitant]
     Active Substance: ETANERCEPT
     Indication: Rheumatoid arthritis
     Route: 058
     Dates: start: 201711, end: 201802
  10. TOCILIZUMAB [Concomitant]
     Active Substance: TOCILIZUMAB
     Indication: Rheumatoid arthritis
     Route: 058
     Dates: start: 201803, end: 201804

REACTIONS (2)
  - Mitral valve incompetence [Recovered/Resolved]
  - Osteoarthritis [Unknown]

NARRATIVE: CASE EVENT DATE: 20201001
